FAERS Safety Report 18667201 (Version 1)
Quarter: 2020Q4

REPORT INFORMATION
  Report Type: Report from Study
  Country: LT (occurrence: LT)
  Receive Date: 20201228
  Receipt Date: 20201228
  Transmission Date: 20210114
  Serious: Yes (Hospitalization)
  Sender: FDA-Public Use
  Company Number: LT-JNJFOC-20191007518

PATIENT
  Age: 41 Year
  Sex: Female
  Weight: 43 kg

DRUGS (14)
  1. NEURORUBINE [Concomitant]
     Indication: RADICULOPATHY
     Route: 030
     Dates: start: 20190315, end: 20190324
  2. CEFUROXIME. [Concomitant]
     Active Substance: CEFUROXIME
     Indication: URINARY TRACT INFECTION
     Route: 048
     Dates: start: 20180823, end: 20180829
  3. RISEDRONIC ACID [Concomitant]
     Active Substance: RISEDRONIC ACID
     Indication: OSTEOPOROSIS
     Route: 048
     Dates: start: 20190411
  4. CEFZIL [Concomitant]
     Active Substance: CEFPROZIL
     Route: 065
     Dates: start: 20191002, end: 20191009
  5. CALCIGRAN FORTE [Concomitant]
     Active Substance: CALCIUM CARBONATE\CHOLECALCIFEROL
     Indication: OSTEOPOROSIS
     Route: 048
     Dates: start: 20190411
  6. PREDNISOLONE. [Concomitant]
     Active Substance: PREDNISOLONE
     Route: 048
     Dates: start: 20180717, end: 20190228
  7. PREDNISOLONE. [Concomitant]
     Active Substance: PREDNISOLONE
     Route: 048
     Dates: start: 20190301
  8. PLAQUENIL [Concomitant]
     Active Substance: HYDROXYCHLOROQUINE SULFATE
     Route: 048
     Dates: start: 20100114
  9. CEFUROXIME. [Concomitant]
     Active Substance: CEFUROXIME
     Route: 048
     Dates: start: 20181019, end: 20181025
  10. ZANTAC [Concomitant]
     Active Substance: RANITIDINE HYDROCHLORIDE
     Route: 048
     Dates: start: 20180712
  11. CIPROFLOKSACINE [Concomitant]
     Indication: URINARY RETENTION
     Route: 048
     Dates: start: 20190625, end: 20190704
  12. PLACEBO [Suspect]
     Active Substance: UNSPECIFIED INGREDIENT
     Indication: SYSTEMIC LUPUS ERYTHEMATOSUS
     Route: 042
     Dates: start: 20180904, end: 20180904
  13. PLACEBO [Suspect]
     Active Substance: UNSPECIFIED INGREDIENT
     Route: 058
     Dates: start: 20181031
  14. LORNOXICAM [Concomitant]
     Active Substance: LORNOXICAM
     Indication: RADICULOPATHY
     Route: 030
     Dates: start: 20190514, end: 20190524

REACTIONS (1)
  - Neurogenic bladder [Recovered/Resolved with Sequelae]

NARRATIVE: CASE EVENT DATE: 20190930
